FAERS Safety Report 9138225 (Version 1)
Quarter: 2013Q1

REPORT INFORMATION
  Report Type: Report from Study
  Country: DE (occurrence: DE)
  Receive Date: 20130305
  Receipt Date: 20130305
  Transmission Date: 20140127
  Serious: Yes (Life-Threatening, Hospitalization, Disabling)
  Sender: FDA-Public Use
  Company Number: DE-009507513-1010DEU00021

PATIENT
  Age: 59 Year
  Sex: Female
  Weight: 61 kg

DRUGS (2)
  1. VORINOSTAT [Suspect]
     Indication: SARCOMA METASTATIC
     Dosage: 400 MG, QD
     Route: 048
     Dates: start: 20100905, end: 20101002
  2. AMPHO MORONAL [Concomitant]
     Dosage: 1 DF, QID
     Dates: start: 20100921

REACTIONS (5)
  - Hyperglycaemia [Recovered/Resolved]
  - Decreased appetite [Recovered/Resolved]
  - Dehydration [Recovered/Resolved]
  - Oral candidiasis [Recovered/Resolved]
  - Thrombocytopenia [Unknown]
